FAERS Safety Report 9651898 (Version 2)
Quarter: 2013Q4

REPORT INFORMATION
  Report Type: Report from Study
  Country: US (occurrence: US)
  Receive Date: 20131029
  Receipt Date: 20131111
  Transmission Date: 20140711
  Serious: No
  Sender: FDA-Public Use
  Company Number: US-JNJFOC-20131014016

PATIENT
  Age: 29 Year
  Sex: Male
  Weight: 71.22 kg

DRUGS (6)
  1. PALIPERIDONE PALMITATE [Suspect]
     Indication: SCHIZOPHRENIA
     Route: 030
     Dates: start: 20130918
  2. PALIPERIDONE PALMITATE [Suspect]
     Indication: SCHIZOPHRENIA
     Route: 030
     Dates: start: 20120720
  3. KLONOPIN [Concomitant]
     Indication: ANXIETY
     Route: 065
     Dates: start: 20130918
  4. KLONOPIN [Concomitant]
     Indication: ANXIETY
     Route: 065
     Dates: start: 20130422, end: 20130918
  5. MIRTAZAPINE [Concomitant]
     Indication: DEPRESSION
     Route: 065
     Dates: start: 20130201
  6. PALIPERIDONE [Concomitant]
     Indication: SCHIZOPHRENIA
     Route: 048
     Dates: start: 20131017

REACTIONS (1)
  - Blood creatine phosphokinase increased [Not Recovered/Not Resolved]
